FAERS Safety Report 9775780 (Version 1)
Quarter: 2013Q4

REPORT INFORMATION
  Report Type: Spontaneous
  Country: US (occurrence: US)
  Receive Date: 20131220
  Receipt Date: 20131220
  Transmission Date: 20140711
  Serious: Yes (Hospitalization)
  Sender: FDA-Public Use
  Company Number: US-B.I. PHARMACEUTICALS,INC./RIDGEFIELD-2013-BI-42266BP

PATIENT
  Age: 83 Year
  Sex: Female

DRUGS (8)
  1. PRADAXA [Suspect]
     Indication: ATRIAL FIBRILLATION
     Dosage: 300 MG
     Route: 048
  2. FISH OIL [Concomitant]
  3. ROSUVASTATIN [Concomitant]
  4. SERTRALINE [Concomitant]
  5. ALPRAZOLAM [Concomitant]
  6. LISINOPRIL [Concomitant]
  7. AMLODIPINE [Concomitant]
  8. METOPROLOL SUCCINATE [Concomitant]

REACTIONS (1)
  - Haemorrhage intracranial [Not Recovered/Not Resolved]
